FAERS Safety Report 9723682 (Version 1)
Quarter: 2013Q4

REPORT INFORMATION
  Report Type: Spontaneous
  Country: GB (occurrence: GB)
  Receive Date: 20131202
  Receipt Date: 20131202
  Transmission Date: 20140711
  Serious: Yes (Other)
  Sender: FDA-Public Use
  Company Number: GB-GLAXOSMITHKLINE-B0948837A

PATIENT
  Age: 72 Year
  Sex: Female

DRUGS (8)
  1. CLENIL MODULITE [Suspect]
     Indication: PRODUCT USED FOR UNKNOWN INDICATION
     Route: 055
     Dates: start: 20131003
  2. AMITRIPTYLINE HYDROCHLORIDE [Concomitant]
     Dates: start: 20130717
  3. PARACETAMOL [Concomitant]
     Dates: start: 20130911
  4. CHLORAMPHENICOL [Concomitant]
     Dates: start: 20130911, end: 20130912
  5. DICLOFENAC SODIUM [Concomitant]
     Dates: start: 20130902, end: 20130909
  6. OVESTIN [Concomitant]
     Dates: start: 20130801, end: 20131002
  7. CINNARIZINE [Concomitant]
     Dates: start: 20131023, end: 20131030
  8. SALBUTAMOL [Concomitant]
     Dates: start: 20131003, end: 20131004

REACTIONS (3)
  - Dizziness [Recovered/Resolved]
  - Malaise [Unknown]
  - Vertigo [Unknown]
